FAERS Safety Report 17394222 (Version 2)
Quarter: 2022Q3

REPORT INFORMATION
  Report Type: Other
  Country: US (occurrence: None)
  Receive Date: 20200210
  Receipt Date: 20220819
  Transmission Date: 20221027
  Serious: Yes (Death, Hospitalization)
  Sender: FDA-Public Use
  Company Number: US-ROCHE-2535265

PATIENT
  Sex: Female

DRUGS (1)
  1. OCREVUS [Suspect]
     Active Substance: OCRELIZUMAB
     Indication: Relapsing multiple sclerosis
     Dosage: IV THERAPY DAY1 300MG; IV THERAPY DAY15 300MG, IV THERAPY Q 6 MONTHS 600MG. DATE OF TREATMENT: 15/MA
     Route: 042
     Dates: start: 20190228

REACTIONS (2)
  - Pneumonia [Fatal]
  - Anaemia [Fatal]
